FAERS Safety Report 7013026-9 (Version None)
Quarter: 2010Q3

REPORT INFORMATION
  Report Type: 
  Country: None (occurrence: None)
  Receive Date: 20100924
  Receipt Date: 20100914
  Transmission Date: 20110219
  Serious: Yes (Other)
  Sender: FDA-Public Use
  Company Number: JP-PFIZER INC-2010102885

PATIENT
  Age: 66 Year
  Sex: Female
  Weight: 45 kg

DRUGS (7)
  1. LYRICA [Suspect]
     Indication: POST HERPETIC NEURALGIA
     Dosage: 75 MG, 2X/DAY
     Route: 048
     Dates: start: 20100720, end: 20100826
  2. ASPIRIN [Suspect]
     Indication: CARDIAC FAILURE
     Dosage: 100 MG, 1X/DAY
     Route: 048
     Dates: start: 20080714
  3. PREDNISOLONE [Suspect]
     Indication: RHEUMATOID ARTHRITIS
     Dosage: 5 MG, 2X/DAY
     Route: 048
     Dates: start: 20070907
  4. VALTREX [Concomitant]
     Indication: HERPES ZOSTER
     Dosage: 500 MG, 3X/DAY
     Route: 048
     Dates: start: 20100625, end: 20100627
  5. VALTREX [Concomitant]
     Dosage: 500 MG, 2X/DAY
     Route: 048
     Dates: start: 20100628, end: 20100702
  6. METHYCOBAL [Concomitant]
     Indication: HERPES ZOSTER
     Dosage: 500 MG, 3X/DAY
     Route: 048
     Dates: start: 20100628
  7. AMITRIPTYLINE HCL [Concomitant]
     Indication: POST HERPETIC NEURALGIA
     Dosage: 10 MG, 3X/DAY
     Route: 048
     Dates: end: 20100719

REACTIONS (3)
  - CREATININE RENAL CLEARANCE DECREASED [None]
  - HAEMORRHAGE SUBCUTANEOUS [None]
  - OEDEMA PERIPHERAL [None]
